FAERS Safety Report 4690080-0 (Version None)
Quarter: 2005Q2

REPORT INFORMATION
  Report Type: 
  Country: None (occurrence: None)
  Receive Date: 20050614
  Receipt Date: 20050608
  Transmission Date: 20051028
  Serious: Yes (Hospitalization)
  Sender: FDA-Public Use
  Company Number: 2005-129153-NL

PATIENT
  Age: 80 Year
  Sex: Male

DRUGS (4)
  1. MIRTAZAPINE [Suspect]
     Indication: ABNORMAL BEHAVIOUR
     Dosage: 15 MG
     Route: 048
  2. RISPERIDONE [Suspect]
     Indication: ABNORMAL BEHAVIOUR
     Dosage: 3 MG
     Route: 048
  3. DI-ANTALVIC [Suspect]
     Dosage: 1 DF
     Route: 048
  4. METFORMIN HCL [Suspect]
     Dosage: 1700 MG
     Route: 048

REACTIONS (8)
  - CEREBROVASCULAR ACCIDENT [None]
  - HEADACHE [None]
  - HYPERPROLACTINAEMIA [None]
  - HYPERTENSION [None]
  - PITUITARY TUMOUR BENIGN [None]
  - SOMNOLENCE [None]
  - TUMOUR NECROSIS [None]
  - VOMITING [None]
